FAERS Safety Report 7045737-3 (Version None)
Quarter: 2010Q4

REPORT INFORMATION
  Report Type: 
  Country: None (occurrence: None)
  Receive Date: 20101014
  Receipt Date: 20101005
  Transmission Date: 20110411
  Serious: Yes (Other)
  Sender: FDA-Public Use
  Company Number: CA-MERCK-1010USA00605

PATIENT
  Age: 50 Year
  Sex: Male
  Weight: 65 kg

DRUGS (4)
  1. ISENTRESS [Suspect]
     Route: 048
  2. INTELENCE [Suspect]
     Route: 048
  3. NORVIR [Suspect]
     Route: 048
  4. PREZISTA [Suspect]
     Route: 048

REACTIONS (5)
  - BLOOD ALKALINE PHOSPHATASE INCREASED [None]
  - BLOOD BILIRUBIN INCREASED [None]
  - HEPATIC FAILURE [None]
  - HEPATITIS B [None]
  - TRANSAMINASES INCREASED [None]
